FAERS Safety Report 5062896-2 (Version None)
Quarter: 2006Q3

REPORT INFORMATION
  Report Type: 
  Country: None (occurrence: None)
  Receive Date: 20060724
  Receipt Date: 20060711
  Transmission Date: 20061208
  Serious: Yes (Death, Hospitalization, Other)
  Sender: FDA-Public Use
  Company Number: 2006055573

PATIENT
  Age: 80 Year
  Sex: Male
  Weight: 100 kg

DRUGS (13)
  1. SUTENT [Suspect]
     Indication: RENAL CELL CARCINOMA STAGE UNSPECIFIED
     Dosage: 50 MG (50 MG, INTERVAL:  EVERYDAY), ORAL
     Route: 048
     Dates: start: 20060313, end: 20060409
  2. SYMBICORT TURBOHALER (BUDESONIDE, FORMOTEROL FUMARATE) [Concomitant]
  3. AUGMENTIN '125' [Concomitant]
  4. DIGOXIN [Concomitant]
  5. ALLOPURINOL [Concomitant]
  6. DILTIAZEM HYDROCHLORIDE [Concomitant]
  7. TAHOR (ATORVASTATIN) [Concomitant]
  8. FOZITEC (FOSINOPRIL) [Concomitant]
  9. LASIX [Concomitant]
  10. POTASSIUM CHLORIDE [Concomitant]
  11. LEVOTHYROXINE SODIUM [Concomitant]
  12. MEDROL ACETATE [Concomitant]
  13. PREVISCAN (FLUINDIONE) [Concomitant]

REACTIONS (5)
  - DEPRESSED LEVEL OF CONSCIOUSNESS [None]
  - LUNG DISORDER [None]
  - NEUTROPENIA [None]
  - PNEUMONIA [None]
  - THROMBOCYTOPENIA [None]
